FAERS Safety Report 13032238 (Version 1)
Quarter: 2016Q4

REPORT INFORMATION
  Report Type: Spontaneous
  Country: US (occurrence: US)
  Receive Date: 20161215
  Receipt Date: 20161215
  Transmission Date: 20170207
  Serious: Yes (Death)
  Sender: FDA-Public Use
  Company Number: US-FRESENIUS KABI-FK201609879

PATIENT
  Age: 86 Day
  Sex: Male

DRUGS (1)
  1. ONDANSETRON (MANUFACTURER UNKNOWN) [Suspect]
     Active Substance: ONDANSETRON
     Indication: GASTROENTERITIS
     Route: 048

REACTIONS (2)
  - Cardiac arrest [Fatal]
  - Product use issue [Fatal]
